FAERS Safety Report 16093966 (Version 1)
Quarter: 2019Q1

REPORT INFORMATION
  Report Type: Spontaneous
  Country: IT (occurrence: IT)
  Receive Date: 20190225
  Receipt Date: 20190225
  Transmission Date: 20190418
  Serious: Yes (Hospitalization)
  Sender: FDA-Public Use
  Company Number: IT-JNJFOC-20190228588

PATIENT
  Age: 30 Year
  Sex: Female

DRUGS (5)
  1. ZIRTEC [Suspect]
     Active Substance: CETIRIZINE HYDROCHLORIDE
     Route: 048
  2. VERTISERC [Suspect]
     Active Substance: BETAHISTINE HYDROCHLORIDE
     Indication: SUICIDE ATTEMPT
     Route: 048
     Dates: start: 20190210, end: 20190210
  3. VALIUM [Suspect]
     Active Substance: DIAZEPAM
     Indication: SUICIDE ATTEMPT
     Route: 048
     Dates: start: 20190210, end: 20190210
  4. ZIRTEC [Suspect]
     Active Substance: CETIRIZINE HYDROCHLORIDE
     Indication: SUICIDE ATTEMPT
     Route: 048
     Dates: start: 20190210, end: 20190210
  5. NOVALGINA [Suspect]
     Active Substance: METAMIZOLE SODIUM
     Indication: SUICIDE ATTEMPT
     Route: 048
     Dates: start: 20190210, end: 20190210

REACTIONS (4)
  - Somnolence [Recovering/Resolving]
  - Suicide attempt [Recovering/Resolving]
  - Disorientation [Recovering/Resolving]
  - Confusional state [Recovering/Resolving]

NARRATIVE: CASE EVENT DATE: 20190210
